FAERS Safety Report 19109489 (Version 1)
Quarter: 2021Q2

REPORT INFORMATION
  Report Type: Spontaneous
  Country: IN (occurrence: IN)
  Receive Date: 20210409
  Receipt Date: 20210409
  Transmission Date: 20210717
  Serious: Yes (Other)
  Sender: FDA-Public Use
  Company Number: IN-SUN PHARMACEUTICAL INDUSTRIES LTD-2021R1-290431

PATIENT
  Sex: Male

DRUGS (1)
  1. IMATINIB. [Suspect]
     Active Substance: IMATINIB MESYLATE
     Indication: CHEMOTHERAPY
     Dosage: 400 MG ONCE A DAY
     Route: 065

REACTIONS (1)
  - Chloasma [Unknown]
